FAERS Safety Report 5628985-6 (Version None)
Quarter: 2008Q1

REPORT INFORMATION
  Report Type: 
  Country: None (occurrence: None)
  Receive Date: 20080214
  Receipt Date: 20080204
  Transmission Date: 20080703
  Serious: Yes (Death)
  Sender: FDA-Public Use
  Company Number: 2008-01114

PATIENT
  Age: 52 Year
  Sex: Female

DRUGS (11)
  1. FENTANYL [Suspect]
  2. DOXEPIN HCL [Suspect]
  3. METHOCARBAMOL [Suspect]
  4. IBUPROFEN TABLETS [Suspect]
  5. BUPROPION HYDROCHLORIDE [Suspect]
  6. FLUOXETINE [Suspect]
  7. OXYCODONE AND ACETAMINOPHEN [Suspect]
  8. AMOXICILLIN [Suspect]
  9. PREGABALIN() [Suspect]
  10. ATORVASTATIN CALCIUM [Suspect]
  11. TIZANIDINE HCL [Suspect]

REACTIONS (1)
  - CARDIO-RESPIRATORY ARREST [None]
